FAERS Safety Report 12148076 (Version 1)
Quarter: 2016Q1

REPORT INFORMATION
  Report Type: Spontaneous
  Country: US (occurrence: US)
  Receive Date: 20160304
  Receipt Date: 20160304
  Transmission Date: 20160526
  Serious: No
  Sender: FDA-Public Use
  Company Number: PHEH2016US005091

PATIENT
  Age: 60 Year
  Sex: Female

DRUGS (1)
  1. AFINITOR [Suspect]
     Active Substance: EVEROLIMUS
     Indication: BREAST CANCER
     Dosage: 10 MG, QD (ONCE DAILY)
     Route: 048

REACTIONS (3)
  - Cough [Recovering/Resolving]
  - Bronchitis viral [Unknown]
  - Impaired healing [Recovered/Resolved]
